FAERS Safety Report 16561560 (Version 1)
Quarter: 2019Q3

REPORT INFORMATION
  Report Type: Spontaneous
  Country: US (occurrence: US)
  Receive Date: 20190711
  Receipt Date: 20190711
  Transmission Date: 20191004
  Serious: Yes (Other)
  Sender: FDA-Public Use
  Company Number: US-KALA PHARAMACEUTICALS-2019KLA00025

PATIENT
  Sex: Male

DRUGS (1)
  1. INVELTYS [Suspect]
     Active Substance: LOTEPREDNOL ETABONATE
     Dosage: UNK
     Dates: start: 2019

REACTIONS (2)
  - Ulcerative keratitis [Unknown]
  - Intraocular pressure increased [Unknown]
